FAERS Safety Report 9194725 (Version 1)
Quarter: 2013Q1

REPORT INFORMATION
  Report Type: Spontaneous
  Country: US (occurrence: US)
  Receive Date: 20130327
  Receipt Date: 20130327
  Transmission Date: 20140127
  Serious: No
  Sender: FDA-Public Use
  Company Number: US-ALLERGAN-1208655US

PATIENT
  Age: 84 Year
  Sex: Female

DRUGS (1)
  1. LATISSE 0.03% [Suspect]
     Indication: GROWTH OF EYELASHES
     Dosage: 2 GTT, QOD
     Route: 061
     Dates: start: 201205, end: 201206

REACTIONS (3)
  - Inappropriate schedule of drug administration [Unknown]
  - Ocular icterus [Recovered/Resolved]
  - Ocular hyperaemia [Recovered/Resolved]
